FAERS Safety Report 20956507 (Version 2)
Quarter: 2022Q2

REPORT INFORMATION
  Report Type: Spontaneous
  Country: RU (occurrence: RU)
  Receive Date: 20220614
  Receipt Date: 20220622
  Transmission Date: 20220721
  Serious: Yes (Other)
  Sender: FDA-Public Use
  Company Number: RU-NOVARTISPH-NVSC2022RU131705

PATIENT
  Sex: Male
  Weight: 2.8 kg

DRUGS (10)
  1. DEXAMETHASONE [Suspect]
     Active Substance: DEXAMETHASONE
     Indication: Foetal exposure during pregnancy
     Dosage: MATERNAL DOSE: UNK
     Route: 064
  2. OMEPRAZOLE [Suspect]
     Active Substance: OMEPRAZOLE
     Indication: Foetal exposure during pregnancy
     Dosage: MATERNAL DOSE: UNKNOWN
     Route: 064
  3. FLUCONAZOLE [Suspect]
     Active Substance: FLUCONAZOLE
     Indication: Foetal exposure during pregnancy
     Dosage: MATERNAL DOSE: 10-15 ML/KG/DAY
     Route: 064
  4. IRON [Suspect]
     Active Substance: IRON
     Indication: Foetal exposure during pregnancy
     Dosage: MATERNAL DOSE: UNK
     Route: 064
  5. TOCILIZUMAB [Suspect]
     Active Substance: TOCILIZUMAB
     Indication: Foetal exposure during pregnancy
     Dosage: MATERNAL DOSE: 324 MG, SINGLE DOSE
     Route: 064
  6. AMPICILLIN SODIUM\SULBACTAM SODIUM [Suspect]
     Active Substance: AMPICILLIN SODIUM\SULBACTAM SODIUM
     Indication: Foetal exposure during pregnancy
     Dosage: MATERNAL DOSE: UNK
     Route: 064
  7. INSULIN NOS [Suspect]
     Active Substance: INSULIN NOS
     Indication: Foetal exposure during pregnancy
     Dosage: MATERNAL DOSE: UNK
     Route: 064
  8. DALTEPARIN SODIUM [Suspect]
     Active Substance: DALTEPARIN SODIUM
     Indication: Foetal exposure during pregnancy
     Dosage: MATERNAL DOSE: 5000 IU TWICE DAILY
     Route: 064
  9. FAVIPIRAVIR [Suspect]
     Active Substance: FAVIPIRAVIR
     Indication: Foetal exposure during pregnancy
     Dosage: MATERNAL DOSE: UNK
     Route: 064
  10. INTERFERON ALFA-2B [Suspect]
     Active Substance: INTERFERON ALFA-2B
     Indication: Foetal exposure during pregnancy
     Dosage: MATERNAL DOSE: UNK
     Route: 064

REACTIONS (3)
  - Foetal distress syndrome [Unknown]
  - Premature baby [Unknown]
  - Foetal exposure during pregnancy [Unknown]
